FAERS Safety Report 5824336-2 (Version None)
Quarter: 2008Q3

REPORT INFORMATION
  Report Type: 
  Country: None (occurrence: None)
  Receive Date: 20080722
  Receipt Date: 20080709
  Transmission Date: 20090109
  Serious: Yes (Life-Threatening, Hospitalization, Other)
  Sender: FDA-Public Use
  Company Number: S08-FRA-01965-01

PATIENT
  Age: 82 Year
  Sex: Male
  Weight: 83 kg

DRUGS (9)
  1. ESCITALOPRAM OXALATE [Suspect]
     Indication: DEPRESSION
     Dosage: 10 MG (10 MG, 1 IN 1 D),ORAL;  5 MG (5 MG, 1 IN 1 D),ORAL
     Route: 048
     Dates: start: 20080407, end: 20080417
  2. ESCITALOPRAM OXALATE [Suspect]
     Indication: DEPRESSION
     Dosage: 10 MG (10 MG, 1 IN 1 D),ORAL;  5 MG (5 MG, 1 IN 1 D),ORAL
     Route: 048
     Dates: start: 20080418, end: 20080505
  3. INDAPAMIDE [Suspect]
     Dosage: 1.5 MG (1.5 MG), ORAL
     Route: 048
     Dates: start: 20080306, end: 20080505
  4. FLECAINIDE ACETATE [Suspect]
     Dosage: (100 MG,1 IN 1 ID)
  5. UVIMAG B6 [Concomitant]
  6. TEMERIT [Concomitant]
  7. ODRIK [Concomitant]
  8. PARIET [Concomitant]
  9. ZESTORETIC [Concomitant]

REACTIONS (14)
  - ACTIVITIES OF DAILY LIVING IMPAIRED [None]
  - ANOREXIA [None]
  - COGNITIVE DISORDER [None]
  - CONDITION AGGRAVATED [None]
  - DEPRESSION [None]
  - DRUG INTERACTION [None]
  - GASTROINTESTINAL DISORDER [None]
  - GENERAL PHYSICAL HEALTH DETERIORATION [None]
  - HYPOCHLORAEMIA [None]
  - HYPOKALAEMIA [None]
  - HYPONATRAEMIA [None]
  - INTENTIONAL OVERDOSE [None]
  - INTENTIONAL SELF-INJURY [None]
  - SUICIDE ATTEMPT [None]
